FAERS Safety Report 10544692 (Version 3)
Quarter: 2015Q2

REPORT INFORMATION
  Report Type: Spontaneous
  Country: US (occurrence: None)
  Receive Date: 20141020
  Receipt Date: 20150420
  Transmission Date: 20150821
  Serious: No
  Sender: FDA-Public Use
  Company Number: AEGR000570

PATIENT
  Age: 60 Year
  Sex: Male
  Weight: 133.3 kg

DRUGS (8)
  1. FISH OIL [Concomitant]
     Active Substance: FISH OIL
  2. FENOFIBRATE. [Concomitant]
     Active Substance: FENOFIBRATE
  3. VITAMINS [Concomitant]
     Active Substance: VITAMINS
  4. PRAVACHOL (PRAVASTATIN SODIUM) [Concomitant]
  5. WELCHOL (COLESEVELAM HYDROCHLORIDE) [Concomitant]
  6. NIASPAN (NICOTINIC ACID) [Concomitant]
  7. JUXTAPID [Suspect]
     Active Substance: LOMITAPIDE MESYLATE
     Indication: TYPE IIA HYPERLIPIDAEMIA
     Route: 048
     Dates: start: 20140619, end: 20141116
  8. ZETIA [Concomitant]
     Active Substance: EZETIMIBE

REACTIONS (6)
  - Inappropriate schedule of drug administration [None]
  - Poor quality sleep [None]
  - Weight decreased [None]
  - Terminal insomnia [None]
  - Therapeutic response unexpected [None]
  - Diarrhoea [None]

NARRATIVE: CASE EVENT DATE: 201406
